FAERS Safety Report 16481229 (Version 1)
Quarter: 2019Q2

REPORT INFORMATION
  Report Type: Spontaneous
  Country: US (occurrence: US)
  Receive Date: 20190626
  Receipt Date: 20190626
  Transmission Date: 20190711
  Serious: Yes (Death)
  Sender: FDA-Public Use
  Company Number: US-JIANGSU HENGRUI MEDICINE CO., LTD.-2069694

PATIENT
  Age: 17 Year
  Sex: Male
  Weight: 82 kg

DRUGS (10)
  1. CYCLOPHOSPHAMIDE FOR INJECTION USP, 500 MG, 1 G AND 2 G PER SINGLE-DOS [Suspect]
     Active Substance: CYCLOPHOSPHAMIDE
     Indication: ACUTE LYMPHOCYTIC LEUKAEMIA RECURRENT
  2. BORTEZOMIB. [Suspect]
     Active Substance: BORTEZOMIB
  3. MITOXANTRONE [Suspect]
     Active Substance: MITOXANTRONE HYDROCHLORIDE
  4. ETOPOSIDE. [Suspect]
     Active Substance: ETOPOSIDE
  5. INOTUZUMAB [Suspect]
     Active Substance: INOTUZUMAB OZOGAMICIN
  6. VENETOCLAX. [Suspect]
     Active Substance: VENETOCLAX
  7. DEXAMETHASONE. [Suspect]
     Active Substance: DEXAMETHASONE
  8. KYMRIAH [Suspect]
     Active Substance: TISAGENLECLEUCEL
     Route: 041
     Dates: start: 20180904, end: 20180904
  9. CYTARABINE. [Suspect]
     Active Substance: CYTARABINE
  10. VINCRISTINE [Suspect]
     Active Substance: VINCRISTINE

REACTIONS (3)
  - Neoplasm progression [Fatal]
  - Intestinal perforation [Not Recovered/Not Resolved]
  - Subdural haematoma [Not Recovered/Not Resolved]

NARRATIVE: CASE EVENT DATE: 20190516
